FAERS Safety Report 7247671-2 (Version None)
Quarter: 2011Q1

REPORT INFORMATION
  Report Type: 
  Country: None (occurrence: None)
  Receive Date: 20110127
  Receipt Date: 20110121
  Transmission Date: 20110831
  Serious: Yes (Other)
  Sender: FDA-Public Use
  Company Number: US-PFIZER INC-2011015686

PATIENT
  Sex: Female
  Weight: 52.154 kg

DRUGS (6)
  1. XANAX [Concomitant]
     Indication: ANXIETY
     Dosage: UNK, AS NEEDED
  2. CHANTIX [Suspect]
     Dosage: 1 MG, 2X/DAY
     Route: 048
  3. TRAZODONE [Concomitant]
     Indication: SLEEP DISORDER
     Dosage: UNK
  4. CHANTIX [Suspect]
     Indication: SMOKING CESSATION THERAPY
     Dosage: 0.5 MG, 1X/DAY
     Route: 048
     Dates: start: 20110114
  5. EFFEXOR [Concomitant]
     Indication: DEPRESSION
     Dosage: UNK
  6. CHANTIX [Suspect]
     Dosage: 0.5 MG, 2X/DAY
     Route: 048

REACTIONS (3)
  - ANXIETY [None]
  - IRRITABILITY [None]
  - NERVOUSNESS [None]
